FAERS Safety Report 23588362 (Version 1)
Quarter: 2024Q1

REPORT INFORMATION
  Report Type: Spontaneous
  Country: CA (occurrence: CA)
  Receive Date: 20240302
  Receipt Date: 20240302
  Transmission Date: 20240409
  Serious: Yes (Hospitalization, Disabling)
  Sender: FDA-Public Use
  Company Number: None

PATIENT
  Age: 88 Year
  Sex: Male
  Weight: 63 kg

DRUGS (17)
  1. TOPIRAMATE [Suspect]
     Active Substance: TOPIRAMATE
     Indication: Essential tremor
     Dosage: 2 EVERY 1 DAYS
  2. VITAMIN D [Concomitant]
     Active Substance: VITAMIN D NOS
  3. ALLOPURINOL [Concomitant]
     Active Substance: ALLOPURINOL
  4. AMLODIPINE [Concomitant]
     Active Substance: AMLODIPINE BESYLATE
     Route: 065
  5. ASPIRIN [Concomitant]
     Active Substance: ASPIRIN
  6. ATORVASTATIN CALCIUM [Concomitant]
     Active Substance: ATORVASTATIN CALCIUM
     Route: 065
  7. CALCIUM [Concomitant]
     Active Substance: CALCIUM
  8. CETIRIZINE [Concomitant]
     Active Substance: CETIRIZINE HYDROCHLORIDE
     Route: 065
  9. DOCUSATE SODIUM [Concomitant]
     Active Substance: DOCUSATE SODIUM
  10. ISOSORBIDE MONONITRATE [Concomitant]
     Active Substance: ISOSORBIDE MONONITRATE
     Dosage: EXTENDED RELEASE
  11. POLYETHYLENE GLYCOL [Concomitant]
     Active Substance: POLYETHYLENE GLYCOL
  12. LEVOTHYROXINE SODIUM [Concomitant]
     Active Substance: LEVOTHYROXINE SODIUM
     Route: 065
  13. PROPRANOLOL [Concomitant]
     Active Substance: PROPRANOLOL HYDROCHLORIDE
  14. SENNOSIDES [Concomitant]
     Active Substance: SENNOSIDES
  15. TOPIRAMATE [Concomitant]
     Active Substance: TOPIRAMATE
  16. TOPIRAMATE [Suspect]
     Active Substance: TOPIRAMATE
     Indication: Essential tremor
     Dosage: 2 EVERY 1 DAYS
  17. TOPIRAMATE [Suspect]
     Active Substance: TOPIRAMATE
     Indication: Essential tremor
     Dosage: 1 EVERY 1 DAYS

REACTIONS (4)
  - Asthenia [Recovering/Resolving]
  - Ataxia [Recovering/Resolving]
  - Fall [Recovering/Resolving]
  - Movement disorder [Recovering/Resolving]
